FAERS Safety Report 12784292 (Version 1)
Quarter: 2016Q3

REPORT INFORMATION
  Report Type: Spontaneous
  Country: CA (occurrence: CA)
  Receive Date: 20160927
  Receipt Date: 20160927
  Transmission Date: 20161109
  Serious: Yes (Other)
  Sender: FDA-Public Use
  Company Number: CA-BEH-200012097DDC

PATIENT
  Age: 48 Year
  Sex: Male

DRUGS (6)
  1. FOLIC ACID. [Concomitant]
     Active Substance: FOLIC ACID
     Indication: ANAEMIA
     Dosage: DAILY DOSE QUANTITY: 5, DAILY DOSE UNIT: MG
     Route: 048
  2. RANITIDINE. [Concomitant]
     Active Substance: RANITIDINE
     Dosage: DAILY DOSE QUANTITY: 150, DAILY DOSE UNIT: MG
     Route: 042
  3. STREPTASE [Suspect]
     Active Substance: STREPTOKINASE
     Indication: PULMONARY EMBOLISM
     Dosage: DAILY DOSE QUANTITY: 250000, DAILY DOSE UNIT: IU
     Route: 042
     Dates: start: 20000419, end: 20000419
  4. WARFARIN [Concomitant]
     Active Substance: WARFARIN
     Indication: THROMBOCYTOPENIC PURPURA
     Dosage: DAILY DOSE QUANTITY: 15, DAILY DOSE UNIT: MG
     Route: 048
  5. METFORMINE [Concomitant]
     Active Substance: METFORMIN HYDROCHLORIDE
     Indication: TYPE 2 DIABETES MELLITUS
     Dosage: DAILY DOSE QUANTITY: 1000, DAILY DOSE UNIT: MG
     Route: 048
  6. SULFAZALAZINE [Concomitant]
     Dosage: DAILY DOSE QUANTITY: 2000, DAILY DOSE UNIT: MG
     Route: 048

REACTIONS (4)
  - Hypersensitivity [Recovered/Resolved]
  - Erythema [Unknown]
  - Angioedema [Unknown]
  - Diplopia [Unknown]

NARRATIVE: CASE EVENT DATE: 20000419
